FAERS Safety Report 13698901 (Version 1)
Quarter: 2017Q2

REPORT INFORMATION
  Report Type: Report from Study
  Country: US (occurrence: US)
  Receive Date: 20170628
  Receipt Date: 20170628
  Transmission Date: 20170830
  Serious: Yes (Other)
  Sender: FDA-Public Use
  Company Number: US-AMGEN-USASL2017095437

PATIENT
  Sex: Female

DRUGS (2)
  1. ENBREL [Suspect]
     Active Substance: ETANERCEPT
     Indication: RHEUMATOID ARTHRITIS
     Dosage: UNK
     Route: 065
     Dates: start: 2015
  2. METHOTREXATE. [Concomitant]
     Active Substance: METHOTREXATE
     Dosage: UNK UNK, 2 TIMES/WK (6 PILLS) ON THURSDAYS AND FRIDAYS

REACTIONS (4)
  - Diabetes mellitus [Not Recovered/Not Resolved]
  - Accidental exposure to product [Unknown]
  - Vein disorder [Unknown]
  - Peripheral swelling [Not Recovered/Not Resolved]
